FAERS Safety Report 7564296-X (Version None)
Quarter: 2011Q2

REPORT INFORMATION
  Report Type: 
  Country: None (occurrence: None)
  Receive Date: 20110622
  Receipt Date: 20110608
  Transmission Date: 20111010
  Serious: Yes (Hospitalization)
  Sender: FDA-Public Use
  Company Number: PHHY2011FR24486

PATIENT
  Sex: Male

DRUGS (7)
  1. PREVISCAN [Concomitant]
     Dosage: UNK
  2. PAROXETINE HCL [Concomitant]
     Dosage: 20 MG, UNK
  3. STALEVO 100 [Suspect]
     Indication: PARKINSON'S DISEASE
     Dosage: UNK
     Dates: start: 20110118, end: 20110304
  4. METFORMIN HCL [Concomitant]
     Dosage: 500 MG, UNK
  5. BROMAZEPAM [Concomitant]
     Dosage: UNK
  6. PRAMIPEXOLE DIHYCHLLORIDE [Suspect]
     Dosage: UNK
     Dates: end: 20110118
  7. TRANDOLAPRIL [Concomitant]
     Dosage: 0.5 MG, UNK

REACTIONS (14)
  - EXTENSOR PLANTAR RESPONSE [None]
  - AGGRESSION [None]
  - TREMOR [None]
  - AKINESIA [None]
  - REFLEXES ABNORMAL [None]
  - DELIRIUM [None]
  - INSOMNIA [None]
  - BLOOD FIBRINOGEN INCREASED [None]
  - PSYCHOMOTOR HYPERACTIVITY [None]
  - AGITATION [None]
  - LOGORRHOEA [None]
  - SPEECH DISORDER [None]
  - ABNORMAL BEHAVIOUR [None]
  - HYPERTONIA [None]
